FAERS Safety Report 10878787 (Version 1)
Quarter: 2015Q1

REPORT INFORMATION
  Report Type: Spontaneous
  Country: CH (occurrence: CH)
  Receive Date: 20150302
  Receipt Date: 20150302
  Transmission Date: 20150721
  Serious: Yes (Other)
  Sender: FDA-Public Use
  Company Number: CH-TEVA-543703ISR

PATIENT
  Sex: Male
  Weight: 2.32 kg

DRUGS (6)
  1. ATENOLOL. [Suspect]
     Active Substance: ATENOLOL
     Route: 064
     Dates: start: 2013, end: 2014
  2. SEQUASE [Suspect]
     Active Substance: QUETIAPINE FUMARATE
     Dosage: 17.5 MILLIGRAM DAILY;
  3. CANSARTAN-MEPHA [Suspect]
     Active Substance: CANDESARTAN CILEXETIL
     Dosage: 8 MILLIGRAM DAILY; MOTHER TOOK 8 MG ONCE PER DAY, STOPPED IN EARLY PREGNANCY
     Route: 064
     Dates: start: 2013, end: 2014
  4. SEQUASE [Suspect]
     Active Substance: QUETIAPINE FUMARATE
     Dosage: 25 MILLIGRAM DAILY; MOTHER TOOK 25 MG PER DAY, REDUCED TO 17.5 MG, LONG TERM
     Route: 064
     Dates: start: 2013
  5. ADALAT [Suspect]
     Active Substance: NIFEDIPINE
     Dosage: 40 MILLIGRAM DAILY; MOTHER TOOK 20 MG TWICE PER DAY
     Route: 064
     Dates: start: 2014
  6. CYMBALTA [Suspect]
     Active Substance: DULOXETINE HYDROCHLORIDE
     Dosage: 30 MILLIGRAM DAILY; MOTHER TOOK 15 MG TWICE PER DAY, LONG TERM
     Route: 064
     Dates: start: 2013

REACTIONS (2)
  - Premature baby [Recovered/Resolved]
  - Exposure during pregnancy [Recovered/Resolved]

NARRATIVE: CASE EVENT DATE: 20140111
